FAERS Safety Report 25357025 (Version 1)
Quarter: 2025Q2

REPORT INFORMATION
  Report Type: Spontaneous
  Country: DE (occurrence: DE)
  Receive Date: 20250526
  Receipt Date: 20250526
  Transmission Date: 20250717
  Serious: Yes (Other)
  Sender: NOVARTIS
  Company Number: DE-002147023-NVSC2025DE083590

PATIENT
  Age: 48 Year
  Sex: Female

DRUGS (1)
  1. KESIMPTA [Suspect]
     Active Substance: OFATUMUMAB
     Indication: Multiple sclerosis
     Dosage: UNK, QMO
     Route: 065
     Dates: start: 202306, end: 202403

REACTIONS (7)
  - Alanine aminotransferase [Unknown]
  - Cough [Recovered/Resolved with Sequelae]
  - Influenza like illness [Recovered/Resolved with Sequelae]
  - Pyrexia [Recovered/Resolved with Sequelae]
  - C-reactive protein [Recovered/Resolved with Sequelae]
  - Hepatic enzyme increased [Unknown]
  - Aspartate aminotransferase normal [Unknown]

NARRATIVE: CASE EVENT DATE: 20230801
